FAERS Safety Report 10644351 (Version 8)
Quarter: 2015Q3

REPORT INFORMATION
  Report Type: Spontaneous
  Country: US (occurrence: US)
  Receive Date: 20141210
  Receipt Date: 20150731
  Transmission Date: 20151125
  Serious: Yes (Hospitalization, Other)
  Sender: FDA-Public Use
  Company Number: US-GLAXOSMITHKLINE-US2014GSK033340

PATIENT
  Sex: Female

DRUGS (25)
  1. NAMENDA [Concomitant]
     Active Substance: MEMANTINE HYDROCHLORIDE
  2. DANAZOL. [Concomitant]
     Active Substance: DANAZOL
  3. PROMACTA [Suspect]
     Active Substance: ELTROMBOPAG OLAMINE
     Indication: IMMUNE THROMBOCYTOPENIC PURPURA
     Dosage: 75 MG, U
     Dates: start: 20120212
  4. GABAPENTIN. [Concomitant]
     Active Substance: GABAPENTIN
     Indication: PAIN
     Dosage: 100 MG, 1D
     Route: 048
  5. METOPROLOL [Concomitant]
     Active Substance: METOPROLOL
     Dosage: 100 MG, 1D
     Route: 048
  6. MEGESTROL [Concomitant]
     Active Substance: MEGESTROL
  7. AMLODIPINE BESYLATE. [Concomitant]
     Active Substance: AMLODIPINE BESYLATE
  8. PROMACTA [Suspect]
     Active Substance: ELTROMBOPAG OLAMINE
     Dosage: 75 MG, QD
     Route: 065
     Dates: start: 20091013
  9. PROMACTA [Suspect]
     Active Substance: ELTROMBOPAG OLAMINE
     Dosage: 75 MG, QD
     Route: 048
  10. PROMACTA [Suspect]
     Active Substance: ELTROMBOPAG OLAMINE
     Dosage: 75 MG, 1D
     Dates: start: 20091012
  11. RAMIPRIL. [Concomitant]
     Active Substance: RAMIPRIL
     Indication: HYPERTENSION
     Dosage: 10 MG, 1D
     Route: 048
  12. MELATONIN [Concomitant]
     Active Substance: MELATONIN
     Indication: SLEEP DISORDER
  13. SPIRIVA [Concomitant]
     Active Substance: TIOTROPIUM BROMIDE MONOHYDRATE
     Dosage: 18 MG, 1D
     Route: 055
  14. PROMACTA [Suspect]
     Active Substance: ELTROMBOPAG OLAMINE
     Dosage: 50 MG, U
  15. PREDNISONE. [Suspect]
     Active Substance: PREDNISONE
     Dosage: 20 MG, UNK
  16. PREDNISONE. [Suspect]
     Active Substance: PREDNISONE
     Dosage: 10 MG, 1D
     Route: 048
  17. DULOXETINE. [Concomitant]
     Active Substance: DULOXETINE
     Indication: DEPRESSION
     Dosage: 60 MG, 1D
     Route: 048
  18. ASPIRIN (BABY) [Concomitant]
     Active Substance: ASPIRIN
     Dosage: 81 MG, 1D
     Route: 048
  19. ESCITALOPRAM [Concomitant]
     Active Substance: ESCITALOPRAM OXALATE
  20. PROMACTA [Suspect]
     Active Substance: ELTROMBOPAG OLAMINE
     Dosage: 50 MG, QD
     Dates: start: 20150508, end: 20150602
  21. PROMACTA [Suspect]
     Active Substance: ELTROMBOPAG OLAMINE
     Dosage: 75 MG, QD
     Route: 048
     Dates: start: 20150602
  22. PROMACTA [Suspect]
     Active Substance: ELTROMBOPAG OLAMINE
     Dosage: 75 MG, U
     Dates: start: 201501
  23. PREDNISONE. [Suspect]
     Active Substance: PREDNISONE
     Indication: PRODUCT USED FOR UNKNOWN INDICATION
     Dosage: 40 MG, UNK
  24. IBANDRONATE [Concomitant]
     Active Substance: IBANDRONATE SODIUM
     Indication: BONE LOSS
     Dosage: 150 MG, MONTHLY
     Route: 048
  25. LEVETIRACETAM. [Concomitant]
     Active Substance: LEVETIRACETAM
     Indication: CONVULSION PROPHYLAXIS
     Dosage: UNK, BID 1A.M. AND 3 P.M.
     Route: 048

REACTIONS (29)
  - Platelet count decreased [Unknown]
  - Oedema peripheral [Unknown]
  - Urinary sediment present [Unknown]
  - Drug dose omission [Unknown]
  - Cerebrovascular accident [Unknown]
  - Thrombosis [Unknown]
  - Cerebral thrombosis [Unknown]
  - Musculoskeletal stiffness [Unknown]
  - White blood cell count increased [Unknown]
  - Decreased appetite [Unknown]
  - Myocardial infarction [Unknown]
  - Gait disturbance [Not Recovered/Not Resolved]
  - Dysstasia [Unknown]
  - Chromaturia [Unknown]
  - Memory impairment [Not Recovered/Not Resolved]
  - Limb discomfort [Unknown]
  - Platelet count increased [Unknown]
  - Asthenia [Not Recovered/Not Resolved]
  - Infection [Unknown]
  - Drug administration error [Unknown]
  - Seizure [Unknown]
  - Platelet disorder [Unknown]
  - Fall [Not Recovered/Not Resolved]
  - Cyanosis [Unknown]
  - Drug ineffective [Unknown]
  - Fatigue [Not Recovered/Not Resolved]
  - Ill-defined disorder [Not Recovered/Not Resolved]
  - Hospitalisation [Unknown]
  - Drug effect increased [Unknown]

NARRATIVE: CASE EVENT DATE: 2013
